FAERS Safety Report 25252912 (Version 1)
Quarter: 2025Q2

REPORT INFORMATION
  Report Type: Spontaneous
  Country: US (occurrence: US)
  Receive Date: 20250429
  Receipt Date: 20250429
  Transmission Date: 20250716
  Serious: No
  Sender: SANDOZ
  Company Number: US-002147023-NVSC2022US027578

PATIENT
  Sex: Female

DRUGS (3)
  1. VIVELLE-DOT [Suspect]
     Active Substance: ESTRADIOL
     Indication: Product used for unknown indication
     Route: 065
  2. CIPRO [Concomitant]
     Active Substance: CIPROFLOXACIN HYDROCHLORIDE
     Indication: Product used for unknown indication
     Dosage: UNK, QD
     Route: 065
  3. IBUPROFEN [Concomitant]
     Active Substance: IBUPROFEN
     Indication: Product used for unknown indication
     Dosage: UNK UNK, QD
     Route: 065

REACTIONS (4)
  - Hot flush [Unknown]
  - Incorrect dose administered by device [Unknown]
  - Product quality issue [Unknown]
  - Product adhesion issue [Unknown]
